FAERS Safety Report 7508798-0 (Version None)
Quarter: 2011Q2

REPORT INFORMATION
  Report Type: 
  Country: None (occurrence: None)
  Receive Date: 20110527
  Receipt Date: 20110316
  Transmission Date: 20111010
  Serious: No
  Sender: FDA-Public Use
  Company Number: A0918530A

PATIENT
  Age: 64 Year
  Sex: Female

DRUGS (8)
  1. SYNTHROID [Concomitant]
  2. ASPIRIN [Concomitant]
  3. AMOXICILLIN [Concomitant]
     Indication: BRONCHITIS
     Dosage: 875MG TWICE PER DAY
     Route: 048
     Dates: start: 20110315
  4. BENZONATATE [Concomitant]
     Indication: COUGH
     Dosage: 200MG THREE TIMES PER DAY
     Route: 048
     Dates: start: 20110315
  5. VENTOLIN [Suspect]
     Indication: BRONCHITIS
     Dosage: 2PUFF AS REQUIRED
     Route: 055
     Dates: start: 20110315, end: 20110315
  6. CORICIDIN [Concomitant]
  7. THERAFLU [Concomitant]
  8. ZOLOFT [Concomitant]

REACTIONS (4)
  - ILL-DEFINED DISORDER [None]
  - TREMOR [None]
  - DRUG INEFFECTIVE [None]
  - BURNING SENSATION [None]
